FAERS Safety Report 23721133 (Version 1)
Quarter: 2024Q2

REPORT INFORMATION
  Report Type: Other
  Country: US (occurrence: None)
  Receive Date: 20240409
  Receipt Date: 20240409
  Transmission Date: 20240716
  Serious: No
  Sender: FDA-Public Use
  Company Number: US-ROCHE-3535470

PATIENT
  Age: 45 Year
  Sex: Female
  Weight: 95.34 kg

DRUGS (5)
  1. OCREVUS [Suspect]
     Active Substance: OCRELIZUMAB
     Indication: Progressive multiple sclerosis
     Route: 042
  2. GABAPENTIN [Concomitant]
     Active Substance: GABAPENTIN
     Indication: Pain
     Dosage: ONE IN MORNING ONE AT NOON AND THREE AT NIGHT
     Route: 048
     Dates: start: 2023
  3. GABAPENTIN [Concomitant]
     Active Substance: GABAPENTIN
     Dosage: ONE IN MORNING AND ONE AT NIGHT ROUTE OF CAPSULE
     Route: 048
  4. VITAMIN B12 [Concomitant]
     Active Substance: CYANOCOBALAMIN
     Indication: Multiple sclerosis
     Route: 048
     Dates: start: 202212
  5. VITAMIN D3 [Concomitant]
     Active Substance: CHOLECALCIFEROL
     Indication: Multiple sclerosis
     Route: 048
     Dates: start: 202212

REACTIONS (3)
  - Multiple sclerosis [Not Recovered/Not Resolved]
  - Influenza [Not Recovered/Not Resolved]
  - Pain in extremity [Not Recovered/Not Resolved]

NARRATIVE: CASE EVENT DATE: 20240322
